FAERS Safety Report 12293375 (Version 1)
Quarter: 2016Q2

REPORT INFORMATION
  Report Type: Report from Study
  Country: US (occurrence: ES)
  Receive Date: 20160421
  Receipt Date: 20160421
  Transmission Date: 20160815
  Serious: Yes (Death, Hospitalization)
  Sender: FDA-Public Use
  Company Number: ES-FRI-1000084119

PATIENT
  Age: 47 Year
  Sex: Female

DRUGS (3)
  1. COLISTIN [Concomitant]
     Active Substance: COLISTIN
     Route: 042
  2. AVYCAZ [Suspect]
     Active Substance: AVIBACTAM SODIUM\CEFTAZIDIME
     Indication: PSEUDOMONAS INFECTION
     Route: 042
  3. AMIKACIN [Concomitant]
     Active Substance: AMIKACIN
     Route: 042

REACTIONS (3)
  - Candida infection [Fatal]
  - Septic shock [Fatal]
  - Respiratory failure [Unknown]
